FAERS Safety Report 5589826-9 (Version None)
Quarter: 2008Q1

REPORT INFORMATION
  Report Type: 
  Country: None (occurrence: None)
  Receive Date: 20080110
  Receipt Date: 20080110
  Transmission Date: 20080703
  Serious: Yes (Hospitalization)
  Sender: FDA-Public Use
  Company Number: None

PATIENT
  Age: 60 Year
  Sex: Female
  Weight: 53.5244 kg

DRUGS (4)
  1. BONIVA [Suspect]
     Indication: OSTEOPENIA
     Dosage: 150 MG  1 PER MONTH  PO
     Route: 048
     Dates: start: 20060405, end: 20070327
  2. BONIVA [Suspect]
     Indication: OSTEOPENIA
     Dosage: 150 MG  1 PER MONTH  PO
     Route: 048
     Dates: start: 20071203, end: 20071203
  3. RANITIDINE [Concomitant]
  4. PREMARIN [Concomitant]

REACTIONS (9)
  - ATRIAL FIBRILLATION [None]
  - ATRIAL FLUTTER [None]
  - EXTRASYSTOLES [None]
  - LARYNGOSPASM [None]
  - MUSCLE SPASMS [None]
  - PALPITATIONS [None]
  - RETCHING [None]
  - TACHYCARDIA [None]
  - UPPER RESPIRATORY TRACT INFECTION [None]
